FAERS Safety Report 14679287 (Version 6)
Quarter: 2018Q2

REPORT INFORMATION
  Report Type: Spontaneous
  Country: US (occurrence: US)
  Receive Date: 20180326
  Receipt Date: 20180628
  Transmission Date: 20180711
  Serious: Yes (Hospitalization, Other)
  Sender: FDA-Public Use
  Company Number: US-PFIZER INC-2018121330

PATIENT
  Age: 65 Year
  Sex: Female

DRUGS (5)
  1. IBRANCE [Suspect]
     Active Substance: PALBOCICLIB
     Dosage: 125 MG, CYCLIC (D 1 -21 Q 28 DAYS)
     Route: 048
     Dates: end: 20180325
  2. IBRANCE [Suspect]
     Active Substance: PALBOCICLIB
     Indication: BREAST CANCER METASTATIC
     Dosage: 125 MG, CYCLIC (D 1 -21 Q 28 DAYS)
     Route: 048
     Dates: start: 20180313
  3. IBRANCE [Suspect]
     Active Substance: PALBOCICLIB
     Dosage: 125 MG, CYCLIC (DAYS 1 - 21 Q28 DAYS)
     Route: 048
  4. IBRANCE [Suspect]
     Active Substance: PALBOCICLIB
     Dosage: 125 MG, CYCLIC (D 1 -21 Q 28 DAYS)
     Route: 048
  5. IBRANCE [Suspect]
     Active Substance: PALBOCICLIB
     Dosage: 125 MG, CYCLIC (D 1 -21 Q 28 DAYS)
     Route: 048
     Dates: start: 20180313

REACTIONS (21)
  - Dyspnoea exertional [Unknown]
  - Blood glucose increased [Unknown]
  - Inflammation [Unknown]
  - Drug dose omission [Unknown]
  - Condition aggravated [Not Recovered/Not Resolved]
  - Peripheral swelling [Unknown]
  - Cough [Unknown]
  - Dehydration [Unknown]
  - Fatigue [Unknown]
  - Pain in extremity [Unknown]
  - Decreased appetite [Unknown]
  - Blood pressure increased [Unknown]
  - Cellulitis [Unknown]
  - Renal impairment [Not Recovered/Not Resolved]
  - Skin lesion [Unknown]
  - Arthralgia [Unknown]
  - Chest pain [Unknown]
  - Productive cough [Unknown]
  - Weight decreased [Unknown]
  - Appetite disorder [Unknown]
  - Erythema [Unknown]

NARRATIVE: CASE EVENT DATE: 201803
